FAERS Safety Report 11296979 (Version 1)
Quarter: 2015Q3

REPORT INFORMATION
  Report Type: Spontaneous
  Country: US (occurrence: US)
  Receive Date: 20150722
  Receipt Date: 20150722
  Transmission Date: 20151125
  Serious: Yes (Other)
  Sender: FDA-Public Use
  Company Number: US-ELI_LILLY_AND_COMPANY-US201011005650

PATIENT
  Age: 67 Year
  Sex: Female
  Weight: 82.09 kg

DRUGS (7)
  1. EFFIENT [Suspect]
     Active Substance: PRASUGREL HYDROCHLORIDE
     Dosage: 10 MG, UNKNOWN
     Route: 065
     Dates: end: 20101115
  2. LASIX [Concomitant]
     Active Substance: FUROSEMIDE
     Dosage: 40 MG, UNK
  3. ALBUTEROL. [Concomitant]
     Active Substance: ALBUTEROL
  4. EFFIENT [Suspect]
     Active Substance: PRASUGREL HYDROCHLORIDE
     Dosage: 60 MG, UNKNOWN, LOADING DOSE
     Route: 065
     Dates: start: 20101104, end: 20101115
  5. LOPRESSOR [Concomitant]
     Active Substance: METOPROLOL TARTRATE
     Dosage: 25 MG, UNK
  6. CAPOTEN [Concomitant]
     Active Substance: CAPTOPRIL
     Dosage: 12.5 MG, UNK
  7. SYMBICORT [Concomitant]
     Active Substance: BUDESONIDE\FORMOTEROL FUMARATE DIHYDRATE

REACTIONS (1)
  - Hyphaema [Recovered/Resolved]
